FAERS Safety Report 8553736-5 (Version None)
Quarter: 2012Q3

REPORT INFORMATION
  Report Type: 
  Country: None (occurrence: None)
  Receive Date: 20120725
  Receipt Date: 20120725
  Transmission Date: 20120928
  Serious: Yes (Other)
  Sender: FDA-Public Use
  Company Number: None

PATIENT
  Sex: Male

DRUGS (3)
  1. HIBICLENS [Concomitant]
  2. DOXYCYCLINE HYCLATE [Suspect]
     Indication: SKIN DISORDER
     Dosage: 100MG TWICE A DAY PO
     Route: 048
     Dates: start: 20120710, end: 20120723
  3. MUPIROCIN [Concomitant]

REACTIONS (3)
  - PENIS DISORDER [None]
  - DYSURIA [None]
  - PENILE HAEMATOMA [None]
